FAERS Safety Report 13070639 (Version 10)
Quarter: 2018Q1

REPORT INFORMATION
  Report Type: Report from Study
  Country: JP (occurrence: JP)
  Receive Date: 20161229
  Receipt Date: 20180228
  Transmission Date: 20180508
  Serious: Yes (Hospitalization)
  Sender: FDA-Public Use
  Company Number: JP-ROCHE-1872268

PATIENT
  Age: 70 Year
  Sex: Male
  Weight: 50.4 kg

DRUGS (19)
  1. NEXIUM [Concomitant]
     Active Substance: ESOMEPRAZOLE MAGNESIUM
     Indication: CHRONIC GASTRITIS
     Route: 065
     Dates: start: 20161027
  2. TALION (JAPAN) [Concomitant]
     Active Substance: BEPOTASTINE
     Indication: ERYTHEMA
     Route: 048
     Dates: start: 20161222, end: 20161227
  3. RESTAMIN KOWA [Concomitant]
     Indication: HYPERSENSITIVITY
     Route: 065
     Dates: start: 20161212, end: 20161212
  4. RANITIDINE. [Concomitant]
     Active Substance: RANITIDINE
     Indication: HYPERSENSITIVITY
     Route: 065
     Dates: start: 20161212, end: 20161212
  5. ATEZOLIZUMAB. [Suspect]
     Active Substance: ATEZOLIZUMAB
     Indication: NON-SMALL CELL LUNG CANCER STAGE IV
     Dosage: DATE OF MOST RECENT DOSE: 12/DEC/2016 (1200 MG).
     Route: 042
     Dates: start: 20161212
  6. CLENAFIN [Concomitant]
     Active Substance: EFINACONAZOLE
     Indication: DERMATOPHYTOSIS OF NAIL
  7. ALOXI [Concomitant]
     Active Substance: PALONOSETRON HYDROCHLORIDE
     Indication: NAUSEA
     Route: 065
     Dates: start: 20161212, end: 20161212
  8. PL [Concomitant]
     Active Substance: ACETAMINOPHEN\CAFFEINE\PROMETHAZINE\SALICYLAMIDE
     Indication: INFECTION
     Route: 065
     Dates: start: 20161221, end: 20161228
  9. SOLULACT D [Concomitant]
     Indication: ERYTHEMA
     Route: 065
     Dates: start: 20161222, end: 20161222
  10. SANCOBA [Concomitant]
     Active Substance: CYANOCOBALAMIN
     Indication: CATARACT
     Route: 047
  11. HIRUDOID OINTMENT [Concomitant]
     Indication: ERYTHEMA
     Route: 065
     Dates: start: 20161222
  12. LYRICA [Concomitant]
     Active Substance: PREGABALIN
     Indication: PERIPHERAL SENSORY NEUROPATHY
     Route: 065
     Dates: start: 20160104
  13. CARBOPLATIN. [Suspect]
     Active Substance: CARBOPLATIN
     Indication: NON-SMALL CELL LUNG CANCER STAGE IV
     Dosage: DATE OF MOST RECENT DOSE: 12/DEC/2016 (602 MG).?AREA UNDER THE CONCENTRATION CURVE (AUC) 6 MG/ML/MIN
     Route: 042
     Dates: start: 20161212
  14. PACLITAXEL. [Suspect]
     Active Substance: PACLITAXEL
     Indication: NON-SMALL CELL LUNG CANCER STAGE IV
     Dosage: DATE OF MOST RECENT DOSE: 12/DEC/2016 (328 MG).
     Route: 042
     Dates: start: 20161212
  15. AZUNOL GARGLE LIQUID [Concomitant]
     Indication: STOMATITIS
     Dosage: AZUNOL GARGLE LIQUID
     Route: 065
     Dates: start: 20161228
  16. SPIRIVA RESPIMAT [Concomitant]
     Active Substance: TIOTROPIUM BROMIDE
     Indication: EMPHYSEMA
     Dosage: SPIRIVA 2.5 G
     Route: 065
     Dates: start: 20160605
  17. SENNOSIDE [Concomitant]
     Active Substance: SENNOSIDES
     Indication: CONSTIPATION
     Route: 048
     Dates: start: 20161213
  18. DOMPERIDONE [Concomitant]
     Active Substance: DOMPERIDONE
     Indication: NAUSEA
     Route: 048
     Dates: start: 20161212, end: 20161218
  19. KARY UNI [Concomitant]
     Active Substance: PIRENOXINE
     Indication: CATARACT
     Route: 047

REACTIONS (2)
  - Pneumonitis [Recovered/Resolved]
  - Febrile neutropenia [Recovered/Resolved]

NARRATIVE: CASE EVENT DATE: 20161224
